FAERS Safety Report 11943904 (Version 1)
Quarter: 2016Q1

REPORT INFORMATION
  Report Type: Spontaneous
  Country: US (occurrence: US)
  Receive Date: 20160125
  Receipt Date: 20160125
  Transmission Date: 20160526
  Serious: Yes (Hospitalization, Other)
  Sender: FDA-Public Use
  Company Number: US-TORRENT-00001080

PATIENT
  Age: 85 Year
  Sex: Female
  Weight: 54 kg

DRUGS (2)
  1. ELIQUIS [Concomitant]
     Active Substance: APIXABAN
     Indication: PRODUCT USED FOR UNKNOWN INDICATION
     Dates: end: 201601
  2. CARBAMAZEPINE TABLETS, USP (CARBAMAZEPINE) (TPL) [Suspect]
     Active Substance: CARBAMAZEPINE
     Indication: SEIZURE
     Dosage: CURRENT:100MG ON A.M. AND 100MG ON P.M.?STARTING: 200MG ON A.M. AND 200MG ON P.M.
     Dates: start: 20151007, end: 20151218

REACTIONS (8)
  - Flushing [Unknown]
  - Paranoia [Unknown]
  - Epistaxis [None]
  - Seizure [Recovered/Resolved]
  - Traumatic haemorrhage [None]
  - Eye disorder [None]
  - Limb injury [None]
  - Diarrhoea [Recovered/Resolved]

NARRATIVE: CASE EVENT DATE: 20151227
